FAERS Safety Report 16849947 (Version 1)
Quarter: 2019Q4

REPORT INFORMATION
  Report Type: Spontaneous
  Country: US (occurrence: US)
  Receive Date: 20190925
  Receipt Date: 20190925
  Transmission Date: 20200122
  Serious: Yes (Hospitalization)
  Sender: FDA-Public Use
  Company Number: None

PATIENT
  Age: 43 Year
  Sex: Male
  Weight: 124 kg

DRUGS (1)
  1. CEFAZOLIN [Suspect]
     Active Substance: CEFAZOLIN
     Indication: BACTERAEMIA
     Route: 042
     Dates: start: 20190831, end: 20190917

REACTIONS (2)
  - Rash maculo-papular [None]
  - Rash pruritic [None]

NARRATIVE: CASE EVENT DATE: 20190908
